FAERS Safety Report 6510225-7 (Version None)
Quarter: 2009Q4

REPORT INFORMATION
  Report Type: 
  Country: None (occurrence: None)
  Receive Date: 20091217
  Receipt Date: 20091209
  Transmission Date: 20100525
  Serious: Yes (Hospitalization)
  Sender: FDA-Public Use
  Company Number: CAP09000328

PATIENT
  Age: 73 Year
  Sex: Female

DRUGS (3)
  1. ACTONEL [Suspect]
     Indication: OSTEOPOROSIS POSTMENOPAUSAL
     Dosage: 150 MG ONE DOSE ONLY, ORAL
     Route: 048
     Dates: start: 20091101, end: 20091101
  2. CLOBETASOL (CLOBETASOL) [Concomitant]
  3. CELESTODERM V (BETAMETHASONE VALERATE) [Concomitant]

REACTIONS (3)
  - SCLERITIS [None]
  - UVEITIS [None]
  - VISUAL IMPAIRMENT [None]
